FAERS Safety Report 4549988-9 (Version None)
Quarter: 2005Q1

REPORT INFORMATION
  Report Type: 
  Country: None (occurrence: None)
  Receive Date: 20050112
  Receipt Date: 20050105
  Transmission Date: 20050727
  Serious: Yes (Hospitalization)
  Sender: FDA-Public Use
  Company Number: FR-BRISTOL-MYERS SQUIBB COMPANY-12815825

PATIENT
  Age: 81 Year
  Sex: Male

DRUGS (8)
  1. COUMADIN [Suspect]
     Route: 048
     Dates: end: 20040206
  2. ASPEGIC 325 [Suspect]
     Route: 048
     Dates: end: 20040202
  3. PERSANTINE [Suspect]
     Route: 048
     Dates: end: 20040206
  4. SURGAM [Suspect]
     Indication: EPIDIDYMITIS
     Route: 048
     Dates: start: 20040201, end: 20040202
  5. PIPRAM [Concomitant]
     Indication: EPIDIDYMITIS
     Dates: start: 20040129
  6. CORVASAL [Concomitant]
  7. COZAAR [Concomitant]
  8. TAHOR [Concomitant]

REACTIONS (4)
  - CEREBRAL HAEMORRHAGE [None]
  - FACIAL PALSY [None]
  - GRAND MAL CONVULSION [None]
  - HEMIPARESIS [None]
